FAERS Safety Report 8958146 (Version 7)
Quarter: 2013Q2

REPORT INFORMATION
  Report Type: Report from Study
  Country: US (occurrence: US)
  Receive Date: 20121211
  Receipt Date: 20130412
  Transmission Date: 20140414
  Serious: Yes (Disabling)
  Sender: FDA-Public Use
  Company Number: US-ROCHE-1158916

PATIENT
  Age: 72 Year
  Sex: Male
  Weight: 73.09 kg

DRUGS (3)
  1. PEGASYS [Suspect]
     Indication: CHRONIC HEPATITIS C
     Route: 058
     Dates: start: 201210, end: 20130329
  2. TELAPREVIR [Suspect]
     Indication: CHRONIC HEPATITIS C
     Route: 065
     Dates: start: 201210
  3. RIBAVIRIN [Suspect]
     Indication: CHRONIC HEPATITIS C
     Dosage: DIVIDED DOSE 600/400
     Route: 048
     Dates: start: 201210, end: 20130329

REACTIONS (45)
  - Malaise [Not Recovered/Not Resolved]
  - Fatigue [Not Recovered/Not Resolved]
  - Insomnia [Unknown]
  - Depression [Unknown]
  - Dysgeusia [Unknown]
  - Nausea [Unknown]
  - Headache [Not Recovered/Not Resolved]
  - Dyspnoea [Unknown]
  - Disturbance in attention [Unknown]
  - Memory impairment [Unknown]
  - Neck pain [Unknown]
  - Myalgia [Unknown]
  - Movement disorder [Unknown]
  - Feeling abnormal [Unknown]
  - Disturbance in attention [Unknown]
  - Red blood cell count decreased [Unknown]
  - Haemoglobin abnormal [Not Recovered/Not Resolved]
  - Peripheral coldness [Unknown]
  - Hypoaesthesia [Unknown]
  - Full blood count decreased [Unknown]
  - Pruritus [Unknown]
  - Abdominal discomfort [Unknown]
  - Sluggishness [Unknown]
  - Mood swings [Unknown]
  - Myalgia [Unknown]
  - Full blood count decreased [Unknown]
  - Nausea [Unknown]
  - Crying [Unknown]
  - Dizziness [Unknown]
  - Retinal haemorrhage [Unknown]
  - Abnormal dreams [Unknown]
  - Dry skin [Unknown]
  - Nocturia [Unknown]
  - Eye irritation [Unknown]
  - Tremor [Unknown]
  - Libido decreased [Unknown]
  - Feeling abnormal [Unknown]
  - Disturbance in attention [Unknown]
  - Memory impairment [Unknown]
  - Dyspnoea [Unknown]
  - Skin disorder [Unknown]
  - Tremor [Unknown]
  - Myalgia [Unknown]
  - Insomnia [Unknown]
  - Anxiety [Unknown]
